FAERS Safety Report 8854172 (Version 1)
Quarter: 2012Q4

REPORT INFORMATION
  Report Type: 
  Country: US (occurrence: US)
  Receive Date: 20121022
  Receipt Date: 20121022
  Transmission Date: 20130627
  Serious: Yes (Other)
  Sender: FDA-Public Use
  Company Number: US-BRISTOL-MYERS SQUIBB COMPANY-17032624

PATIENT
  Age: 79 Year
  Sex: Male

DRUGS (1)
  1. YERVOY [Suspect]
     Dosage: last Yervoy infusion:03Sep12

REACTIONS (3)
  - Bronchopneumonia [Recovered/Resolved]
  - Pruritus [Recovered/Resolved]
  - Myalgia [Recovered/Resolved]
